FAERS Safety Report 11321523 (Version 8)
Quarter: 2016Q1

REPORT INFORMATION
  Report Type: Spontaneous
  Country: US (occurrence: US)
  Receive Date: 20150729
  Receipt Date: 20160201
  Transmission Date: 20160525
  Serious: Yes (Hospitalization, Other)
  Sender: FDA-Public Use
  Company Number: US-GLAXOSMITHKLINE-US2015GSK107767

PATIENT
  Sex: Female
  Weight: 58.96 kg

DRUGS (12)
  1. LAMICTAL [Suspect]
     Active Substance: LAMOTRIGINE
     Indication: SEIZURE
     Dosage: UNK, U
  2. NEURONTIN [Suspect]
     Active Substance: GABAPENTIN
     Indication: SEIZURE
     Dosage: UNK
     Route: 048
     Dates: end: 2012
  3. TRILEPTAL [Suspect]
     Active Substance: OXCARBAZEPINE
     Indication: SEIZURE
     Dosage: UNK
     Route: 048
     Dates: start: 2011, end: 2012
  4. ZONISAMIDE. [Suspect]
     Active Substance: ZONISAMIDE
     Indication: SEIZURE
  5. VIMPAT [Suspect]
     Active Substance: LACOSAMIDE
     Indication: SEIZURE
  6. THORAZINE [Concomitant]
     Active Substance: CHLORPROMAZINE
     Indication: PRODUCT USED FOR UNKNOWN INDICATION
  7. ASPIRIN. [Concomitant]
     Active Substance: ASPIRIN
  8. NITROGLYCERIN. [Concomitant]
     Active Substance: NITROGLYCERIN
  9. SEROQUEL [Suspect]
     Active Substance: QUETIAPINE FUMARATE
     Indication: DEPRESSION
     Dosage: UNK
  10. DEPAKOTE [Suspect]
     Active Substance: DIVALPROEX SODIUM
     Indication: SEIZURE
  11. LAMICTAL XR [Suspect]
     Active Substance: LAMOTRIGINE
     Indication: SEIZURE
     Dosage: 800 MG, UNK
     Route: 048
     Dates: start: 2010, end: 2011
  12. LAMICTAL XR [Suspect]
     Active Substance: LAMOTRIGINE
     Dosage: 1200 MG, U
     Route: 048

REACTIONS (56)
  - Seizure [Not Recovered/Not Resolved]
  - Loss of consciousness [Unknown]
  - Fall [Unknown]
  - Myocardial infarction [Unknown]
  - Psychotic disorder [Unknown]
  - Bipolar disorder [Unknown]
  - Insomnia [Not Recovered/Not Resolved]
  - Coordination abnormal [Unknown]
  - Joint injury [Unknown]
  - Bladder pain [Unknown]
  - General physical condition abnormal [Unknown]
  - Muscular weakness [Unknown]
  - Dizziness [Unknown]
  - Drug hypersensitivity [Unknown]
  - Laceration [Unknown]
  - Haemorrhage [Unknown]
  - Depression [Unknown]
  - Logorrhoea [Unknown]
  - Nausea [Unknown]
  - Fatigue [Unknown]
  - Disturbance in attention [Unknown]
  - Vomiting [Unknown]
  - Urine abnormality [Unknown]
  - Irritability [Unknown]
  - Mania [Unknown]
  - Increased tendency to bruise [Not Recovered/Not Resolved]
  - Balance disorder [Unknown]
  - Tremor [Unknown]
  - Pallor [Unknown]
  - Pollakiuria [Unknown]
  - Alopecia [Unknown]
  - Drug ineffective [Unknown]
  - Chest pain [Unknown]
  - Confusional state [Unknown]
  - Dysstasia [Unknown]
  - Bladder catheterisation [Unknown]
  - Diplopia [Unknown]
  - Abdominal discomfort [Unknown]
  - Cognitive disorder [Unknown]
  - Constipation [Unknown]
  - Strabismus [Unknown]
  - Vision blurred [Unknown]
  - Agitation [Unknown]
  - Anaemia [Unknown]
  - Emotional distress [Unknown]
  - Hospitalisation [Unknown]
  - Amnesia [Unknown]
  - Hostility [Unknown]
  - Urinary tract disorder [Unknown]
  - Urethral repair [Unknown]
  - Contusion [Unknown]
  - Micturition urgency [Not Recovered/Not Resolved]
  - Asthenia [Unknown]
  - Menopause [Unknown]
  - Hyperhidrosis [Unknown]
  - Meniscus injury [Unknown]

NARRATIVE: CASE EVENT DATE: 2010
